FAERS Safety Report 5690886-5 (Version None)
Quarter: 2008Q2

REPORT INFORMATION
  Report Type: 
  Country: None (occurrence: None)
  Receive Date: 20080401
  Receipt Date: 20080324
  Transmission Date: 20081010
  Serious: Yes (Other)
  Sender: FDA-Public Use
  Company Number: BR-ASTRAZENECA-2008UW05993

PATIENT
  Age: 73 Year
  Sex: Female

DRUGS (2)
  1. ATACAND [Suspect]
     Indication: HYPERTENSION
     Route: 048
     Dates: start: 20060101, end: 20080201
  2. CRESTOR [Concomitant]
     Route: 048

REACTIONS (1)
  - MITRAL VALVE DISEASE [None]
